FAERS Safety Report 5137563-7 (Version None)
Quarter: 2006Q4

REPORT INFORMATION
  Report Type: 
  Country: None (occurrence: None)
  Receive Date: 20061030
  Receipt Date: 20051123
  Transmission Date: 20070319
  Serious: Yes (Other)
  Sender: FDA-Public Use
  Company Number: US-GLAXOSMITHKLINE-A0583315A

PATIENT
  Sex: Male

DRUGS (5)
  1. ADVAIR HFA [Suspect]
     Indication: DRUG USE FOR UNKNOWN INDICATION
     Route: 055
  2. ASMACORT [Concomitant]
  3. ALBUTEROL [Concomitant]
  4. AVODART [Concomitant]
  5. FLOMAX [Concomitant]

REACTIONS (1)
  - CATARACT [None]
